FAERS Safety Report 25178201 (Version 1)
Quarter: 2025Q2

REPORT INFORMATION
  Report Type: Spontaneous
  Country: US (occurrence: None)
  Receive Date: 20250407
  Receipt Date: 20250407
  Transmission Date: 20250716
  Serious: Yes (Hospitalization)
  Sender: FDA-CTU
  Company Number: None

PATIENT
  Sex: Male

DRUGS (10)
  1. MYCOPHENOLIC ACID [Suspect]
     Active Substance: MYCOPHENOLIC ACID
     Indication: Renal transplant
     Dosage: FREQUENCY : TWICE A DAY;?
     Route: 048
     Dates: start: 20200109
  2. FERROUS SULFATE [Concomitant]
     Active Substance: FERROUS SULFATE
  3. FUROSEMIDE [Concomitant]
     Active Substance: FUROSEMIDE
  4. LISINOPRIL [Concomitant]
     Active Substance: LISINOPRIL
  5. DOXAZOSIN [Concomitant]
     Active Substance: DOXAZOSIN MESYLATE
  6. BYSTOLIC [Concomitant]
     Active Substance: NEBIVOLOL HYDROCHLORIDE
  7. ALLOPURINOL [Concomitant]
     Active Substance: ALLOPURINOL
  8. AMIODARONE [Concomitant]
     Active Substance: AMIODARONE
  9. ISOSORBIDEMONONITRATE [Concomitant]
  10. PREDNISONE [Concomitant]
     Active Substance: PREDNISONE

REACTIONS (1)
  - Infection [None]
